FAERS Safety Report 15768560 (Version 4)
Quarter: 2020Q1

REPORT INFORMATION
  Report Type: Spontaneous
  Country: US (occurrence: US)
  Receive Date: 20181227
  Receipt Date: 20200220
  Transmission Date: 20200409
  Serious: Yes (Other)
  Sender: FDA-Public Use
  Company Number: US-AMGEN-USASP2018184888

PATIENT
  Age: 58 Year
  Sex: Female
  Weight: 85 kg

DRUGS (10)
  1. ENBREL [Suspect]
     Active Substance: ETANERCEPT
     Indication: RHEUMATOID ARTHRITIS
     Dosage: 50 MG, QWK
     Route: 065
     Dates: start: 20130809, end: 20141231
  2. NEXIUM [Concomitant]
     Active Substance: ESOMEPRAZOLE MAGNESIUM
     Dosage: 40 MG, QD
  3. ASPIRIN EC [Concomitant]
     Active Substance: ASPIRIN
     Dosage: 650 MG, TID
  4. PLAQUENIL [Concomitant]
     Active Substance: HYDROXYCHLOROQUINE SULFATE
     Dosage: 200 MG, TID
  5. NEXIUM [Concomitant]
     Active Substance: ESOMEPRAZOLE MAGNESIUM
     Dosage: 40 MG, QD
  6. MULTIPLE VITAMINS [Concomitant]
     Active Substance: VITAMINS
     Dosage: UNK UNK, QD
  7. ACIDOZOL [Concomitant]
     Dosage: 1500 MILLIGRAM, QD
     Route: 065
  8. PLAQUENIL [HYDROXYCHLOROQUINE PHOSPHATE] [Concomitant]
     Active Substance: HYDROXYCHLOROQUINE DIPHOSPHATE
     Dosage: 200 MG, TID
  9. LEVOTHYROXINE SODIUM. [Concomitant]
     Active Substance: LEVOTHYROXINE SODIUM
     Dosage: 100 MUG, QD
  10. PREDNISONE. [Concomitant]
     Active Substance: PREDNISONE
     Dosage: 5 MG, QD

REACTIONS (14)
  - Rheumatoid arthritis [Unknown]
  - Dysuria [Recovered/Resolved]
  - Bursitis [Unknown]
  - Fatigue [Unknown]
  - Tendonitis [Unknown]
  - Infection [Unknown]
  - Cellulitis [Unknown]
  - Foot deformity [Unknown]
  - Upper respiratory tract infection [Unknown]
  - Asthenia [Unknown]
  - Subcutaneous abscess [Unknown]
  - Hypoaesthesia oral [Unknown]
  - Drug hypersensitivity [Unknown]
  - Paraesthesia [Unknown]

NARRATIVE: CASE EVENT DATE: 201901
